FAERS Safety Report 12203773 (Version 3)
Quarter: 2016Q2

REPORT INFORMATION
  Report Type: Report from Study
  Country: PL (occurrence: PL)
  Receive Date: 20160323
  Receipt Date: 20160419
  Transmission Date: 20160815
  Serious: Yes (Death)
  Sender: FDA-Public Use
  Company Number: PHHO2016PL004239

PATIENT
  Age: 69 Year
  Sex: Female
  Weight: 70 kg

DRUGS (12)
  1. OXYDOLOR [Concomitant]
     Indication: PROPHYLAXIS
     Dosage: 5 MG, UNK
     Route: 065
     Dates: start: 20160120
  2. FRAXIPARINE [Concomitant]
     Active Substance: NADROPARIN CALCIUM
     Indication: PROPHYLAXIS
     Dosage: 0.6 UNK, UNK
     Route: 065
     Dates: start: 20160309
  3. LDK378 [Suspect]
     Active Substance: CERITINIB
     Indication: NON-SMALL CELL LUNG CANCER
     Dosage: 600 MG, UNK
     Route: 048
     Dates: start: 20160308
  4. VITAMIN B6 [Concomitant]
     Active Substance: PYRIDOXINE HYDROCHLORIDE
     Indication: SUPPLEMENTATION THERAPY
     Dosage: 50 MG, UNK
     Route: 065
     Dates: start: 2013
  5. THIOCODIN [Concomitant]
     Indication: ANTITUSSIVE THERAPY
     Dosage: UNK
     Route: 065
     Dates: start: 20160309
  6. MILURIT [Concomitant]
     Active Substance: ALLOPURINOL
     Indication: PROPHYLAXIS
     Dosage: 100 UNK, UNK
     Route: 065
     Dates: start: 20160309
  7. AUGMENTINE [Concomitant]
     Active Substance: AMOXICILLIN\CLAVULANATE POTASSIUM
     Indication: PROPHYLAXIS
     Dosage: 1 G, UNK
     Route: 065
     Dates: start: 20160229, end: 20160302
  8. BETO 50 ZK [Concomitant]
     Indication: HYPERTENSION
     Dosage: 47.5 MG, UNK
     Route: 065
     Dates: start: 201309
  9. ACC [Concomitant]
     Active Substance: ACETYLCYSTEINE
     Indication: PROPHYLAXIS
     Dosage: 600 MG, UNK
     Route: 065
     Dates: start: 20160229, end: 20160302
  10. XORIMAX [Concomitant]
     Active Substance: CEFUROXIME AXETIL
     Indication: PROPHYLAXIS
     Dosage: 500 UNK, UNK
     Route: 065
     Dates: start: 20160309, end: 20160311
  11. BIOFUROKSYM [Concomitant]
     Active Substance: CEFUROXIME SODIUM
     Indication: BRONCHITIS
     Dosage: 1.5 G, UNK
     Route: 065
     Dates: start: 20160316
  12. DHC CONTINUS [Concomitant]
     Active Substance: DIHYDROCODEINE BITARTRATE
     Indication: PROPHYLAXIS
     Dosage: 60 MG, UNK
     Route: 065
     Dates: start: 20160316

REACTIONS (1)
  - Death [Fatal]

NARRATIVE: CASE EVENT DATE: 20160320
